FAERS Safety Report 11883504 (Version 4)
Quarter: 2016Q1

REPORT INFORMATION
  Report Type: Report from Study
  Country: BE (occurrence: BE)
  Receive Date: 20151231
  Receipt Date: 20160113
  Transmission Date: 20160526
  Serious: Yes (Hospitalization)
  Sender: FDA-Public Use
  Company Number: PHHY2015BE164767

PATIENT
  Age: 49 Year
  Sex: Female

DRUGS (1)
  1. AFINITOR [Suspect]
     Active Substance: EVEROLIMUS
     Indication: BREAST CANCER
     Dosage: 5 MG, QD
     Route: 048
     Dates: start: 20151208, end: 20151222

REACTIONS (16)
  - Rash pruritic [Not Recovered/Not Resolved]
  - Tongue ulceration [Not Recovered/Not Resolved]
  - Emotional disorder [Recovering/Resolving]
  - Dyspnoea [Recovering/Resolving]
  - Blister [Not Recovered/Not Resolved]
  - Eczema [Not Recovered/Not Resolved]
  - Pyrexia [Unknown]
  - Asthenia [Recovering/Resolving]
  - Back pain [Not Recovered/Not Resolved]
  - Depressed mood [Unknown]
  - Bronchitis [Recovered/Resolved]
  - Salivary hypersecretion [Not Recovered/Not Resolved]
  - Glossodynia [Unknown]
  - Arthralgia [Not Recovered/Not Resolved]
  - Cough [Recovering/Resolving]
  - Oropharyngeal pain [Not Recovered/Not Resolved]

NARRATIVE: CASE EVENT DATE: 201512
